FAERS Safety Report 8338958-0 (Version None)
Quarter: 2012Q2

REPORT INFORMATION
  Report Type: 
  Country: None (occurrence: None)
  Receive Date: 20120507
  Receipt Date: 20120426
  Transmission Date: 20120825
  Serious: Yes (Hospitalization)
  Sender: FDA-Public Use
  Company Number: CH-BAYER-2012-041121

PATIENT
  Age: 84 Year
  Sex: Male
  Weight: 84 kg

DRUGS (9)
  1. INSULIN [Concomitant]
     Route: 058
  2. MARCUMAR [Suspect]
     Indication: PROPHYLAXIS
     Dosage: 1 DF, QD
     Route: 048
     Dates: start: 20090801, end: 20090901
  3. PLAVIX [Suspect]
     Indication: PROPHYLAXIS
     Dosage: 75 MG, QD
     Route: 048
     Dates: start: 20090901, end: 20111101
  4. NEBIVOLOL HCL [Concomitant]
     Dosage: 5 MG, QD
     Route: 048
     Dates: start: 20090322
  5. ATORVASTATIN CALCIUM [Concomitant]
     Dosage: 80 MG, QD
     Route: 048
     Dates: start: 20090322
  6. AMLODIPINE [Concomitant]
     Dosage: 5 MG, QD
     Route: 048
     Dates: start: 20090322
  7. ASPIRIN [Suspect]
     Indication: PROPHYLAXIS
     Dosage: 100 MG, QD
     Route: 048
     Dates: start: 20090901, end: 20111101
  8. DIOVAN [Concomitant]
     Dosage: 160 MG, QD
     Route: 048
     Dates: start: 20090322
  9. DABIGATRAN ETEXILATE [Suspect]
     Indication: PROPHYLAXIS
     Dosage: 220 MG, QD
     Route: 048
     Dates: start: 20111125

REACTIONS (9)
  - PERIPHERAL NERVE INJURY [None]
  - GASTROINTESTINAL HAEMORRHAGE [None]
  - MUSCLE HAEMORRHAGE [None]
  - PEPTIC ULCER HAEMORRHAGE [None]
  - CHOLECYSTITIS [None]
  - UPPER GASTROINTESTINAL HAEMORRHAGE [None]
  - HAEMORRHAGIC ANAEMIA [None]
  - MELAENA [None]
  - CHOLELITHIASIS [None]
